FAERS Safety Report 5033138-9 (Version None)
Quarter: 2006Q2

REPORT INFORMATION
  Report Type: 
  Country: None (occurrence: None)
  Receive Date: 20060505
  Receipt Date: 20060103
  Transmission Date: 20061013
  Serious: Yes (Other)
  Sender: FDA-Public Use
  Company Number: PHEH2006US00471

PATIENT
  Age: 53 Year
  Sex: Female

DRUGS (7)
  1. DIOVAN HCT [Suspect]
     Indication: HYPERTENSION
     Dosage: 160/12.5
     Dates: start: 20040501
  2. TAMOXIFEN CITRATE [Suspect]
     Indication: BREAST CANCER
     Dates: start: 20040701
  3. LORTAB [Concomitant]
  4. PRILOSEC [Concomitant]
  5. DYAZIDE [Concomitant]
  6. VISTARIL (HYDROXYZINE EMBONATE) [Concomitant]
  7. BELTABS [Concomitant]

REACTIONS (2)
  - BLOOD POTASSIUM DECREASED [None]
  - HOT FLUSH [None]
